FAERS Safety Report 5691398-5 (Version None)
Quarter: 2008Q2

REPORT INFORMATION
  Report Type: 
  Country: None (occurrence: None)
  Receive Date: 20080402
  Receipt Date: 20080221
  Transmission Date: 20081010
  Serious: No
  Sender: FDA-Public Use
  Company Number: US-BAYER-200815776NA

PATIENT
  Age: 56 Year
  Sex: Female
  Weight: 66 kg

DRUGS (2)
  1. MAGNEVIST SINGLE USE 30 ML [Suspect]
     Indication: NUCLEAR MAGNETIC RESONANCE IMAGING
     Route: 042
     Dates: start: 20080221, end: 20080221
  2. MAGNEVIST SINGLE USE 30 ML [Suspect]

REACTIONS (3)
  - FLUSHING [None]
  - THROAT IRRITATION [None]
  - URTICARIA [None]
